FAERS Safety Report 22595671 (Version 1)
Quarter: 2023Q2

REPORT INFORMATION
  Report Type: Spontaneous
  Country: US (occurrence: US)
  Receive Date: 20230613
  Receipt Date: 20230613
  Transmission Date: 20230722
  Serious: Yes (Hospitalization, Other)
  Sender: FDA-Public Use
  Company Number: US-SA-2023SA173295

PATIENT
  Age: 84 Year
  Sex: Male

DRUGS (3)
  1. CLOPIDOGREL BISULFATE [Suspect]
     Active Substance: CLOPIDOGREL BISULFATE
     Indication: Carotid revascularisation
     Dosage: 75 MG
  2. ASPIRIN [Concomitant]
     Active Substance: ASPIRIN
     Indication: Carotid revascularisation
     Dosage: 81 MG
  3. ATORVASTATIN [Concomitant]
     Active Substance: ATORVASTATIN
     Indication: Carotid revascularisation
     Dosage: 80 MG

REACTIONS (8)
  - Vascular stent thrombosis [Recovered/Resolved]
  - Drug resistance [Recovered/Resolved]
  - Muscular weakness [Recovered/Resolved]
  - Hypoaesthesia [Recovered/Resolved]
  - Lethargy [Recovered/Resolved]
  - Facial paralysis [Recovered/Resolved]
  - Hemiplegia [Recovered/Resolved]
  - Vascular stent occlusion [Recovered/Resolved]
